FAERS Safety Report 5129342-1 (Version None)
Quarter: 2006Q4

REPORT INFORMATION
  Report Type: 
  Country: None (occurrence: None)
  Receive Date: 20061012
  Receipt Date: 20060927
  Transmission Date: 20070319
  Serious: Yes (Other)
  Sender: FDA-Public Use
  Company Number: CHNY2006DE02328

PATIENT
  Age: 35 Year
  Sex: Male
  Weight: 110 kg

DRUGS (5)
  1. NICOTINELL KAUGUMMI (NCH) (NICOTINE) CHEWABLE GUM [Suspect]
     Indication: SMOKING CESSATION THERAPY
     Dosage: CHEWED
  2. SERTRALINE [Concomitant]
  3. BISOPROLOL RATIOPHARM (BISOPROLOL HEMIFUMARATE) [Concomitant]
  4. TRAMADOL HCL [Concomitant]
  5. ALL OTHER THERAPEUTIC PRODUCTS [Concomitant]

REACTIONS (3)
  - ABDOMINAL PAIN [None]
  - DIZZINESS [None]
  - NAUSEA [None]
